FAERS Safety Report 5690420-X (Version None)
Quarter: 2008Q1

REPORT INFORMATION
  Report Type: 
  Country: None (occurrence: None)
  Receive Date: 20080331
  Receipt Date: 20080331
  Transmission Date: 20080703
  Serious: Yes (Hospitalization)
  Sender: FDA-Public Use
  Company Number: None

PATIENT
  Age: 64 Year
  Sex: Male
  Weight: 80 kg

DRUGS (7)
  1. TEMODAR [Suspect]
     Indication: GLIOBLASTOMA
     Dosage: 400MG PO X 5 DAYS Q29
     Route: 048
     Dates: start: 20080309, end: 20080313
  2. TOPOTECAN 1.5MG/M2 ON DAYS 2 - 6 OF 28 DAY CYCLE [Suspect]
     Indication: GLIOBLASTOMA
     Dosage: 3 MG PO X 5 DAYS Q 29
     Route: 048
     Dates: start: 20080310, end: 20080314
  3. METOPROLOL TARTRATE [Concomitant]
  4. NEXIUM [Concomitant]
  5. DILANTIN [Concomitant]
  6. DEXAMETHASONE [Concomitant]
  7. COUMADIN [Concomitant]

REACTIONS (4)
  - BRAIN OEDEMA [None]
  - GLIOBLASTOMA [None]
  - INTRAVENTRICULAR HAEMORRHAGE [None]
  - MALIGNANT NEOPLASM PROGRESSION [None]
